FAERS Safety Report 9823925 (Version 2)
Quarter: 2014Q1

REPORT INFORMATION
  Report Type: Spontaneous
  Country: US (occurrence: US)
  Receive Date: 20140116
  Receipt Date: 20140116
  Transmission Date: 20141002
  Serious: No
  Sender: FDA-Public Use
  Company Number: US-GILEAD-2011-0038144

PATIENT
  Sex: Female

DRUGS (4)
  1. LETAIRIS [Suspect]
     Indication: PULMONARY HYPERTENSION
     Route: 048
     Dates: start: 20100726
  2. LETAIRIS [Suspect]
     Indication: COLLAGEN-VASCULAR DISEASE
     Route: 048
     Dates: start: 20100223
  3. LETAIRIS [Suspect]
     Indication: MIXED CONNECTIVE TISSUE DISEASE
  4. LETAIRIS [Suspect]
     Indication: RAYNAUD^S PHENOMENON

REACTIONS (4)
  - Dehydration [Unknown]
  - Respiratory tract infection [Unknown]
  - Pyrexia [Unknown]
  - Pneumonia [Unknown]
